FAERS Safety Report 4597683-2 (Version None)
Quarter: 2005Q1

REPORT INFORMATION
  Report Type: 
  Country: None (occurrence: None)
  Receive Date: 20050303
  Receipt Date: 20050216
  Transmission Date: 20050727
  Serious: Yes (Hospitalization)
  Sender: FDA-Public Use
  Company Number: CA-JNJFOC-20050205375

PATIENT
  Sex: Female

DRUGS (2)
  1. TOPAMAX [Suspect]
     Route: 049
  2. TOPAMAX [Suspect]
     Route: 049

REACTIONS (2)
  - COMPARTMENT SYNDROME [None]
  - PAIN IN EXTREMITY [None]
